FAERS Safety Report 8608599 (Version 5)
Quarter: 2013Q4

REPORT INFORMATION
  Report Type: Report from Study
  Country: JP (occurrence: JP)
  Receive Date: 20120611
  Receipt Date: 20131203
  Transmission Date: 20140711
  Serious: Yes (Hospitalization)
  Sender: FDA-Public Use
  Company Number: JP-VIIV HEALTHCARE LIMITED-B0806577A

PATIENT
  Age: 46 Year
  Sex: Male

DRUGS (30)
  1. CELSENTRI [Suspect]
     Indication: HIV INFECTION
     Dosage: 150MG TWICE PER DAY
     Route: 048
     Dates: start: 20120528
  2. EPZICOM [Suspect]
     Indication: HIV INFECTION
     Dosage: 1IUAX PER DAY
     Route: 048
     Dates: start: 20120511
  3. ISENTRESS [Suspect]
     Indication: HIV INFECTION
     Dosage: 1IUAX TWICE PER DAY
     Route: 048
     Dates: start: 20120511
  4. ENDOXAN [Suspect]
     Indication: PLASMABLASTIC LYMPHOMA
     Dosage: 1200MG PER DAY
     Route: 042
     Dates: start: 20120314, end: 20120314
  5. ENDOXAN [Suspect]
     Indication: PLASMABLASTIC LYMPHOMA
     Dosage: 300MG PER DAY
     Route: 042
     Dates: start: 20120315, end: 20120318
  6. ONCOVIN [Suspect]
     Indication: PLASMABLASTIC LYMPHOMA
     Dosage: 1.5MG PER DAY
     Route: 042
     Dates: start: 20120314, end: 20120314
  7. ONCOVIN [Suspect]
     Indication: PLASMABLASTIC LYMPHOMA
     Dosage: 1.5MG PER DAY
     Route: 042
     Dates: start: 20120321, end: 20120321
  8. ADRIACIN [Suspect]
     Indication: PLASMABLASTIC LYMPHOMA
     Dosage: 60MG PER DAY
     Route: 042
     Dates: start: 20120314, end: 20120314
  9. METHOTREXATE [Suspect]
     Indication: PLASMABLASTIC LYMPHOMA
     Dosage: 2170MG PER DAY
     Route: 042
     Dates: start: 20120323, end: 20120323
  10. ACINON [Concomitant]
     Dosage: 150MG TWICE PER DAY
     Route: 048
  11. BIOFERMIN R [Concomitant]
     Dosage: 6MG THREE TIMES PER DAY
     Route: 048
  12. URSO [Concomitant]
     Dosage: 100MG THREE TIMES PER DAY
     Route: 048
  13. MYCOSYST [Concomitant]
     Dosage: 200MG PER DAY
     Route: 048
  14. BONALON [Concomitant]
     Route: 048
  15. BAKTAR [Concomitant]
     Dosage: 1IUAX PER DAY
     Route: 048
  16. ZITHROMAC [Concomitant]
     Route: 048
  17. KAYTWO N [Concomitant]
     Dosage: 4ML PER DAY
     Route: 042
  18. ISOTONIC SODIUM CHLORIDE SOLUTION [Concomitant]
     Route: 065
  19. FOSCAVIR [Concomitant]
     Dosage: 6000MG PER DAY
     Route: 042
  20. UNKNOWN DRUG [Concomitant]
     Dosage: 500ML TWICE PER DAY
     Route: 042
  21. MEROPEN [Concomitant]
     Dosage: 100ML THREE TIMES PER DAY
     Route: 042
  22. PANTOL [Concomitant]
     Dosage: 2.5ML TWICE PER DAY
     Route: 042
  23. UNKNOWN DRUG [Concomitant]
     Dosage: 1ML PER DAY
     Route: 042
  24. UNKNOWN DRUG [Concomitant]
     Dosage: 250ML PER DAY
     Route: 042
  25. BFLUID [Concomitant]
     Dosage: 500ML PER DAY
     Route: 042
  26. VITAMEDIN [Concomitant]
     Route: 042
  27. CIPROFLOXACIN [Concomitant]
     Dosage: 75ML TWICE PER DAY
     Route: 042
  28. AMIKACIN SULFATE [Concomitant]
     Dosage: 100MG TWICE PER DAY
     Route: 042
  29. NEUTROGIN [Concomitant]
     Dosage: 1ML PER DAY
     Route: 042
  30. HYDROCORTONE [Concomitant]
     Dosage: 2ML PER DAY
     Route: 042

REACTIONS (4)
  - Pancytopenia [Not Recovered/Not Resolved]
  - Blood erythropoietin decreased [Recovered/Resolved]
  - Carnitine decreased [Recovered/Resolved]
  - Anaemia [Recovering/Resolving]
